FAERS Safety Report 22000551 (Version 1)
Quarter: 2023Q1

REPORT INFORMATION
  Report Type: Spontaneous
  Country: US (occurrence: None)
  Receive Date: 20230215
  Receipt Date: 20230215
  Transmission Date: 20230417
  Serious: Yes (Other)
  Sender: FDA-Public Use
  Company Number: None

PATIENT
  Age: 46 Year
  Sex: Female
  Weight: 128.25 kg

DRUGS (9)
  1. SYMBICORT [Suspect]
     Active Substance: BUDESONIDE\FORMOTEROL FUMARATE DIHYDRATE
     Indication: Cough
     Dosage: OTHER QUANTITY : 2 PUFF(S);?FREQUENCY : TWICE A DAY;?
     Route: 055
     Dates: start: 20221216, end: 20230210
  2. SYMBICORT [Suspect]
     Active Substance: BUDESONIDE\FORMOTEROL FUMARATE DIHYDRATE
     Indication: COVID-19
  3. MONTELUKAST [Concomitant]
     Active Substance: MONTELUKAST SODIUM
  4. BERBERINE [Concomitant]
     Active Substance: BERBERINE
  5. Omega3 [Concomitant]
  6. CHROMIUM PICOLINATE [Concomitant]
     Active Substance: CHROMIUM PICOLINATE
  7. CRANBERRY [Concomitant]
     Active Substance: CRANBERRY
  8. APPLE CIDER VINEGAR [Concomitant]
     Active Substance: APPLE CIDER VINEGAR
  9. HERBALS [Concomitant]
     Active Substance: HERBALS

REACTIONS (8)
  - Chills [None]
  - Hyperhidrosis [None]
  - Crying [None]
  - Feelings of worthlessness [None]
  - Suicidal ideation [None]
  - Retching [None]
  - Withdrawal syndrome [None]
  - Feeling abnormal [None]

NARRATIVE: CASE EVENT DATE: 20230212
